FAERS Safety Report 4853771-4 (Version None)
Quarter: 2005Q4

REPORT INFORMATION
  Report Type: 
  Country: None (occurrence: None)
  Receive Date: 20051212
  Receipt Date: 20051117
  Transmission Date: 20060501
  Serious: Yes (Other)
  Sender: FDA-Public Use
  Company Number: 2005158575

PATIENT
  Age: 52 Year
  Sex: Male
  Weight: 92.9874 kg

DRUGS (2)
  1. DILANTIN KAPSEAL [Suspect]
     Indication: CONVULSION
     Dosage: 500 MG (100 MG, 2 IN 1 D), ORAL
     Route: 048
  2. INFLUENZA VACCINE (INFLUENZA VACCINE) [Suspect]
     Indication: INFLUENZA IMMUNISATION
     Dates: start: 20051101

REACTIONS (6)
  - ANTICONVULSANT DRUG LEVEL DECREASED [None]
  - DRUG INTERACTION [None]
  - FALL [None]
  - HEADACHE [None]
  - LOSS OF CONSCIOUSNESS [None]
  - PHARMACEUTICAL PRODUCT COMPLAINT [None]
